FAERS Safety Report 18223257 (Version 2)
Quarter: 2020Q4

REPORT INFORMATION
  Report Type: Report from Study
  Country: MX (occurrence: MX)
  Receive Date: 20200902
  Receipt Date: 20201001
  Transmission Date: 20210113
  Serious: Yes (Death)
  Sender: FDA-Public Use
  Company Number: NVSC2020MX240986

PATIENT
  Age: 77 Year
  Sex: Male
  Weight: 59 kg

DRUGS (1)
  1. EXFORGE HCT [Suspect]
     Active Substance: AMLODIPINE BESYLATE\HYDROCHLOROTHIAZIDE\VALSARTAN
     Indication: HYPERTENSION
     Dosage: 1 DF, QD (5/160/12.5 MG)
     Route: 048
     Dates: end: 20200820

REACTIONS (2)
  - Lung neoplasm malignant [Fatal]
  - Metastases to bone [Fatal]

NARRATIVE: CASE EVENT DATE: 20200821
